FAERS Safety Report 4338151-2 (Version None)
Quarter: 2004Q2

REPORT INFORMATION
  Report Type: 
  Country: None (occurrence: None)
  Receive Date: 20040412
  Receipt Date: 20040412
  Transmission Date: 20050107
  Serious: Yes (Death)
  Sender: FDA-Public Use
  Company Number: None

PATIENT
  Age: 24 Year
  Sex: Male

DRUGS (1)
  1. PROPOFOL [Suspect]
     Dosage: SEE ATTACHED

REACTIONS (11)
  - ELECTROCARDIOGRAM ST-T CHANGE [None]
  - HYPOKALAEMIA [None]
  - HYPOMAGNESAEMIA [None]
  - HYPOPHOSPHATAEMIA [None]
  - HYPOTENSION [None]
  - INFUSION RELATED REACTION [None]
  - IRRITABILITY [None]
  - METABOLIC ACIDOSIS [None]
  - SHOCK [None]
  - VENTRICULAR ARRHYTHMIA [None]
  - VENTRICULAR DYSFUNCTION [None]
